FAERS Safety Report 19770648 (Version 3)
Quarter: 2022Q3

REPORT INFORMATION
  Report Type: Report from Study
  Country: CA (occurrence: CA)
  Receive Date: 20210901
  Receipt Date: 20220712
  Transmission Date: 20221027
  Serious: Yes (Hospitalization, Other)
  Sender: FDA-Public Use
  Company Number: CA-GLAXOSMITHKLINE-CA2021AMR181584

PATIENT

DRUGS (3)
  1. MEPOLIZUMAB [Suspect]
     Active Substance: MEPOLIZUMAB
     Indication: Asthma
     Dosage: 100 MG, Z, EVERY 4 WEEKS
     Route: 058
     Dates: start: 20181213
  2. PLAVIX [Suspect]
     Active Substance: CLOPIDOGREL BISULFATE
     Indication: Coagulopathy
     Dosage: UNK
  3. IRON [Suspect]
     Active Substance: IRON
     Indication: Product used for unknown indication
     Dosage: UNK

REACTIONS (7)
  - Gastrointestinal haemorrhage [Unknown]
  - Diarrhoea haemorrhagic [Unknown]
  - Diarrhoea [Unknown]
  - Blood potassium increased [Unknown]
  - Melaena [Unknown]
  - Oesophageal dysplasia [Unknown]
  - Anaemia [Unknown]

NARRATIVE: CASE EVENT DATE: 20210803
